FAERS Safety Report 21949656 (Version 1)
Quarter: 2023Q1

REPORT INFORMATION
  Report Type: Spontaneous
  Country: US (occurrence: None)
  Receive Date: 20230202
  Receipt Date: 20230202
  Transmission Date: 20230418
  Serious: Yes (Other)
  Sender: FDA-Public Use
  Company Number: None

PATIENT
  Age: 52 Year
  Sex: Female
  Weight: 82.35 kg

DRUGS (9)
  1. MOLNUPIRAVIR [Suspect]
     Active Substance: MOLNUPIRAVIR
     Indication: COVID-19
     Dosage: FREQUENCY : TWICE A DAY;?
     Route: 048
     Dates: start: 20230119, end: 20230124
  2. OLMESARTAN [Concomitant]
     Active Substance: OLMESARTAN
  3. ATORVASTATIN [Concomitant]
     Active Substance: ATORVASTATIN
  4. LEVOCETIRIZINE [Concomitant]
     Active Substance: LEVOCETIRIZINE
  5. PAROXETINE [Concomitant]
     Active Substance: PAROXETINE
  6. METFORMIN [Concomitant]
     Active Substance: METFORMIN HYDROCHLORIDE
  7. AMLODIPINE [Concomitant]
     Active Substance: AMLODIPINE BESYLATE
  8. PANTOPRAZOLE [Concomitant]
     Active Substance: PANTOPRAZOLE
  9. Physillus Husks (Fiber) [Concomitant]

REACTIONS (3)
  - Pruritus [None]
  - Rash [None]
  - Rash [None]

NARRATIVE: CASE EVENT DATE: 20230130
